FAERS Safety Report 5895716-4 (Version None)
Quarter: 2008Q3

REPORT INFORMATION
  Report Type: 
  Country: None (occurrence: None)
  Receive Date: 20080924
  Receipt Date: 20071114
  Transmission Date: 20090109
  Serious: No
  Sender: FDA-Public Use
  Company Number: US-BAYER-200714512BWH

PATIENT
  Sex: Male

DRUGS (3)
  1. CIPRO [Suspect]
     Indication: LUNG INFECTION
     Route: 048
     Dates: end: 20070902
  2. ADVIL [Concomitant]
     Indication: PAIN IN EXTREMITY
     Route: 048
  3. DICLOFENAC [Concomitant]
     Indication: TENDONITIS
     Route: 048

REACTIONS (4)
  - MUSCULOSKELETAL PAIN [None]
  - PAIN IN EXTREMITY [None]
  - TENDON PAIN [None]
  - TENDONITIS [None]
